FAERS Safety Report 6146136-9 (Version None)
Quarter: 2009Q2

REPORT INFORMATION
  Report Type: 
  Country: None (occurrence: None)
  Receive Date: 20090407
  Receipt Date: 20090327
  Transmission Date: 20091009
  Serious: Yes (Other)
  Sender: FDA-Public Use
  Company Number: JP-NOVOPROD-285855

PATIENT
  Age: 66 Year
  Sex: Female
  Weight: 42 kg

DRUGS (7)
  1. LEVEMIR [Suspect]
     Indication: TYPE 2 DIABETES MELLITUS
     Dosage: 2-3 IU
     Route: 058
     Dates: start: 20090210, end: 20090219
  2. GLYCORAN [Concomitant]
     Indication: TYPE 2 DIABETES MELLITUS
     Dosage: 750 MG, QD
     Route: 048
     Dates: start: 20090206
  3. GLUCOBAY [Concomitant]
     Indication: TYPE 2 DIABETES MELLITUS
     Dosage: 300 MG, QD
     Route: 048
     Dates: start: 20090206
  4. EUGLUCON [Concomitant]
     Indication: TYPE 2 DIABETES MELLITUS
     Dosage: 5 MG, QD
     Route: 048
     Dates: start: 20090206
  5. LIPOVAS                            /00848101/ [Concomitant]
     Indication: HYPERLIPIDAEMIA
     Dosage: 5 MG, QD
     Route: 048
     Dates: start: 20090206
  6. ASPIRIN [Concomitant]
     Indication: CAROTID ARTERY OCCLUSION
     Dosage: 100 MG, QD
     Route: 048
     Dates: start: 20090206
  7. LASIX [Concomitant]
     Indication: HYPERKALAEMIA
     Dosage: 20 MG, QD
     Route: 048
     Dates: start: 20090206

REACTIONS (1)
  - LIVER DISORDER [None]
